APPROVED DRUG PRODUCT: PENICILLIN V POTASSIUM
Active Ingredient: PENICILLIN V POTASSIUM
Strength: EQ 250MG BASE
Dosage Form/Route: TABLET;ORAL
Application: A062936 | Product #001 | TE Code: AB
Applicant: CHARTWELL RX SCIENCES LLC
Approved: Nov 25, 1988 | RLD: No | RS: No | Type: RX